FAERS Safety Report 13473471 (Version 2)
Quarter: 2018Q2

REPORT INFORMATION
  Report Type: Spontaneous
  Country: US (occurrence: US)
  Receive Date: 20170424
  Receipt Date: 20180418
  Transmission Date: 20180711
  Serious: Yes (Other)
  Sender: FDA-Public Use
  Company Number: US-ASTELLAS-2017US011523

PATIENT
  Sex: Female

DRUGS (2)
  1. LEXISCAN [Suspect]
     Active Substance: REGADENOSON
     Indication: CHEST PAIN
  2. LEXISCAN [Suspect]
     Active Substance: REGADENOSON
     Indication: SCAN MYOCARDIAL PERFUSION
     Dosage: UNK UNK, UNKNOWN FREQ.
     Route: 065

REACTIONS (2)
  - Incorrect drug administration duration [Unknown]
  - Atrioventricular block [Recovering/Resolving]
